FAERS Safety Report 6645260-1 (Version None)
Quarter: 2010Q1

REPORT INFORMATION
  Report Type: 
  Country: None (occurrence: None)
  Receive Date: 20100322
  Receipt Date: 20100312
  Transmission Date: 20100710
  Serious: Yes (Hospitalization, Other)
  Sender: FDA-Public Use
  Company Number: PHHY2010US06162

PATIENT
  Sex: Female
  Weight: 49 kg

DRUGS (25)
  1. MYFORTIC [Suspect]
     Indication: LUNG TRANSPLANT
     Dosage: 720 MG, BID
     Route: 048
     Dates: start: 20081112
  2. MYFORTIC [Suspect]
     Indication: IMMUNOSUPPRESSION
  3. AZITHROMYCIN [Concomitant]
     Indication: RESPIRATORY TRACT INFLAMMATION
     Dosage: 250 MG, QD
     Route: 048
     Dates: start: 20081224
  4. PAXIL [Concomitant]
     Dosage: 20 MG, UNK
     Route: 048
     Dates: start: 20060501
  5. ATIVAN [Concomitant]
     Dosage: 1 MG, BID
     Route: 048
     Dates: start: 20020101
  6. FISH OIL [Concomitant]
     Dosage: 1 G, BID
     Dates: start: 20100308
  7. MYCELEX [Concomitant]
     Dosage: 1 PO QID X 2 WEEKS
     Route: 048
     Dates: start: 20100308
  8. PRANDIN ^KUHN^ [Concomitant]
     Dosage: 0.5 MG, TID WITH MEALS
     Dates: start: 20100216
  9. PROGRAF [Concomitant]
     Dosage: 2MG AM, 2.5 MG PM, GOAL 10-12
     Dates: start: 20100215
  10. CLONIDINE [Concomitant]
     Dosage: 0.2 MG, TID
     Dates: start: 20100130
  11. DAPSONE [Concomitant]
     Dosage: 100 MG, QD
  12. FIBERCON (POLYCARBOPHIL CALCIUM) [Concomitant]
     Dosage: 1250 MG, QID
  13. FLAGYL [Concomitant]
     Dosage: 250 MG, TID
  14. HUMALOG [Concomitant]
     Dosage: 12 U, UNK
  15. PHOSLO [Concomitant]
     Dosage: 1334 MG, TID WITH MEALS
  16. ZOCOR [Concomitant]
     Dosage: 10 MG, QD
  17. VACCINES [Concomitant]
     Dosage: H1N1 VACCINE
     Dates: start: 20091201
  18. ACYCLOVIR [Concomitant]
     Dosage: 200 MG, BID
  19. DUONEB [Concomitant]
     Dosage: 3 ML, QID PRN
  20. FLORINEF [Concomitant]
     Dosage: 0.1 MG, QD
  21. LOPRESSOR [Concomitant]
     Dosage: 150 MG, BID
  22. PREDNISONE TAB [Concomitant]
     Dosage: 5MG AM AND 2.5MG PM
  23. INFLUENZA VACCINE [Concomitant]
     Dosage: UNK
     Dates: start: 20091001
  24. MAGNESIUM GLUCONATE [Concomitant]
     Dosage: 500 MG, BID
  25. CALTRATE + D                       /00944201/ [Concomitant]
     Dosage: ONE BID
     Dates: start: 20081112

REACTIONS (10)
  - ARTERIOSCLEROSIS CORONARY ARTERY [None]
  - BACTERIAL TEST POSITIVE [None]
  - CHEST PAIN [None]
  - CLOSTRIDIAL INFECTION [None]
  - DYSPNOEA [None]
  - ENTEROCOCCAL INFECTION [None]
  - FATIGUE [None]
  - MALAISE [None]
  - OROPHARYNGEAL PAIN [None]
  - PNEUMONIA [None]
